FAERS Safety Report 9913956 (Version 4)
Quarter: 2014Q2

REPORT INFORMATION
  Report Type: Report from Study
  Country: US (occurrence: US)
  Receive Date: 20140220
  Receipt Date: 20140522
  Transmission Date: 20141212
  Serious: Yes (Hospitalization, Other)
  Sender: FDA-Public Use
  Company Number: US-ACTELION-A-US2014-94843

PATIENT
  Age: 84 Year
  Sex: Female
  Weight: 48.98 kg

DRUGS (30)
  1. TRACLEER [Suspect]
     Indication: PULMONARY ARTERIAL HYPERTENSION
     Dosage: 125 MG, BID
     Route: 048
     Dates: start: 201112
  2. REVATIO [Concomitant]
     Dosage: 40 MG, TID
  3. COUMADIN [Concomitant]
     Dosage: 3 MG, QD
  4. COUMADIN [Concomitant]
     Dosage: 5 UNK, UNK
  5. DIGOXIN [Concomitant]
     Dosage: 0.125 MG, QD
  6. RYTHMOL [Concomitant]
     Dosage: 225 MG, TID
  7. PROTONIX [Concomitant]
     Dosage: 40 MG, QD
  8. PLAVIX [Concomitant]
     Dosage: 75 MG, QD
  9. DIOVAN [Concomitant]
     Dosage: 120 MG, BID
  10. ASPIRIN [Concomitant]
     Dosage: 81 MG, QD
  11. ADVAIR HFA [Concomitant]
     Dosage: 2 PUFF, BID
  12. TYLENOL 8 HOUR [Concomitant]
     Dosage: 650 MG, UNK
  13. VITAMIN D [Concomitant]
     Dosage: UNK, QD
  14. DRONABINOL [Concomitant]
     Dosage: 2.5 MG, QD
  15. MEGESTROL ACETATE [Concomitant]
     Dosage: 40 MG, BID
  16. TOPROL [Concomitant]
     Dosage: 50 MG, QD
  17. POTASSIUM CHLORIDE [Concomitant]
     Dosage: 10 MEQ, BID
  18. COMPAZINE [Concomitant]
     Dosage: 10 MG, Q6HRS
  19. POLYETHYLENE GLYCOL [Concomitant]
  20. OSCAL [Concomitant]
     Dosage: UNK, QD
  21. ALBUTEROL SULFATE [Concomitant]
     Dosage: 2 PUFF, Q4HRS
  22. IRON [Concomitant]
     Dosage: UNK, QD
  23. CIPRO [Concomitant]
     Dosage: 250 MG, BID
  24. TADALAFIL [Concomitant]
     Dosage: 40 MG, QD
  25. FLAGYL [Concomitant]
  26. DUONEB [Concomitant]
  27. ADVAIR [Suspect]
  28. LASIX [Concomitant]
     Dosage: 20 MG, QD
  29. PREVACID [Concomitant]
     Dosage: 30 MG, QD
  30. METOPROLOL [Concomitant]

REACTIONS (21)
  - Toxicity to various agents [Recovering/Resolving]
  - Troponin increased [Recovering/Resolving]
  - Asthenia [Unknown]
  - Rales [Recovering/Resolving]
  - Dyspnoea exertional [Recovering/Resolving]
  - Fall [Recovering/Resolving]
  - Skin abrasion [Recovering/Resolving]
  - Contusion [Recovering/Resolving]
  - Cor pulmonale [Recovered/Resolved]
  - Fluid overload [Recovered/Resolved]
  - Hypotension [Recovering/Resolving]
  - Liver function test abnormal [Unknown]
  - Aspartate aminotransferase increased [Unknown]
  - Blood alkaline phosphatase increased [Unknown]
  - Blood bilirubin increased [Unknown]
  - Laryngitis [Recovering/Resolving]
  - Oropharyngeal pain [Recovering/Resolving]
  - Cough [Recovering/Resolving]
  - Oedema peripheral [Recovering/Resolving]
  - Urinary tract infection enterococcal [Unknown]
  - Nervous system disorder [Unknown]
